FAERS Safety Report 8985238 (Version 1)
Quarter: 2012Q4

REPORT INFORMATION
  Report Type: Report from Study
  Country: DE (occurrence: DE)
  Receive Date: 20121226
  Receipt Date: 20121226
  Transmission Date: 20130627
  Serious: Yes (Hospitalization)
  Sender: FDA-Public Use
  Company Number: DE-AMGEN-DEUCT2012083062

PATIENT
  Age: 56 Year
  Sex: Female

DRUGS (5)
  1. ETANERCEPT [Suspect]
     Indication: RHEUMATOID ARTHRITIS
     Dosage: 25 mg, UNK
     Dates: start: 201003
  2. LANTAREL [Suspect]
     Dosage: 15 mg, weekly
     Dates: start: 200110
  3. FOLIC ACID [Concomitant]
     Dosage: 10 mg, weekly
     Route: 048
     Dates: start: 200110
  4. PREDNISOLON                        /00016201/ [Concomitant]
     Dosage: 5 mg, 1x/day
     Route: 048
     Dates: start: 200110
  5. VOLTAREN RESINAT [Concomitant]
     Dosage: 1 DF, 1x/day
     Route: 048
     Dates: start: 200306

REACTIONS (3)
  - Impaired healing [Recovered/Resolved]
  - Wound infection bacterial [Recovered/Resolved]
  - Superinfection bacterial [Recovered/Resolved]
